FAERS Safety Report 8574539-1 (Version None)
Quarter: 2012Q3

REPORT INFORMATION
  Report Type: 
  Country: None (occurrence: None)
  Receive Date: 20120806
  Receipt Date: 20120724
  Transmission Date: 20120928
  Serious: No
  Sender: FDA-Public Use
  Company Number: US-009507513-1207USA009574

PATIENT

DRUGS (3)
  1. JANUVIA [Suspect]
     Indication: TYPE 2 DIABETES MELLITUS
     Dosage: 100 MG, QD
     Route: 048
     Dates: start: 20120724
  2. AMARYL [Concomitant]
  3. CRESTOR [Concomitant]

REACTIONS (2)
  - NAUSEA [None]
  - BLOOD GLUCOSE INCREASED [None]
